FAERS Safety Report 18300445 (Version 1)
Quarter: 2020Q3

REPORT INFORMATION
  Report Type: Spontaneous
  Country: US (occurrence: US)
  Receive Date: 20200923
  Receipt Date: 20200923
  Transmission Date: 20201103
  Serious: Yes (Disabling)
  Sender: FDA-Public Use
  Company Number: None

PATIENT
  Age: 34 Year
  Sex: Female
  Weight: 77.11 kg

DRUGS (7)
  1. NUVARING [Concomitant]
     Active Substance: ETHINYL ESTRADIOL\ETONOGESTREL
  2. ADVAIR HFA [Concomitant]
     Active Substance: FLUTICASONE PROPIONATE\SALMETEROL XINAFOATE
  3. ALBUTEROL. [Concomitant]
     Active Substance: ALBUTEROL
  4. ALBUTEROL SULFATE INHALATION AEROSOL [Suspect]
     Active Substance: ALBUTEROL SULFATE
     Indication: ASTHMA
     Dosage: QUANTITY: 1 PUFF
     Route: 055
     Dates: start: 20200922, end: 20200922
  5. LORATADINE. [Concomitant]
     Active Substance: LORATADINE
  6. IBUPROFEN. [Concomitant]
     Active Substance: IBUPROFEN
  7. BENADRYL [Concomitant]
     Active Substance: DIPHENHYDRAMINE HYDROCHLORIDE

REACTIONS (6)
  - Device delivery system issue [None]
  - Product design issue [None]
  - Emotional distress [None]
  - Panic reaction [None]
  - Device leakage [None]
  - Device failure [None]

NARRATIVE: CASE EVENT DATE: 20200922
